FAERS Safety Report 17739582 (Version 2)
Quarter: 2020Q2

REPORT INFORMATION
  Report Type: Spontaneous
  Country: DE (occurrence: DE)
  Receive Date: 20200504
  Receipt Date: 20200520
  Transmission Date: 20200714
  Serious: Yes (Hospitalization, Other)
  Sender: FDA-Public Use
  Company Number: DE-DRREDDYS-GER/GER/20/0122542

PATIENT
  Age: 1 Day
  Sex: Female
  Weight: 2.4 kg

DRUGS (6)
  1. LEVETIRACETAM. [Suspect]
     Active Substance: LEVETIRACETAM
     Indication: PRODUCT USED FOR UNKNOWN INDICATION
     Dosage: MATERNAL DOSE: 1500 MG, QD
     Route: 064
     Dates: start: 20140402, end: 20141126
  2. PHENYTOIN. [Suspect]
     Active Substance: PHENYTOIN
     Indication: PRODUCT USED FOR UNKNOWN INDICATION
     Dosage: MATERNAL DOSE: 400 MG, QD 02-APR-2014 - 26-NOV-2014 TRANSPLACENTAL,1 TRIMEST
     Route: 064
     Dates: start: 20140402, end: 20141126
  3. VALPROIC ACID. [Suspect]
     Active Substance: VALPROIC ACID
     Indication: PRODUCT USED FOR UNKNOWN INDICATION
     Dosage: MATERNAL DOSE: 500 MG, QD 02-APR-2014 - 26-NOV-2014 TRANSPLACENTAL,1 TRIMEST
     Route: 064
     Dates: start: 20140402, end: 20141126
  4. CLONAZEPAM. [Suspect]
     Active Substance: CLONAZEPAM
     Indication: PRODUCT USED FOR UNKNOWN INDICATION
     Dosage: 02-APR-2014 - 26-NOV-2014 TRANSPLACENTAL,1 TRIMEST 40 MG/D
     Route: 064
     Dates: start: 20140402, end: 20141126
  5. CLOBAZAM. [Suspect]
     Active Substance: CLOBAZAM
     Indication: PRODUCT USED FOR UNKNOWN INDICATION
     Dosage: MATERNAL DOSE: 40 MG, QD 02-APR-2014 - 26-NOV-2014 TRANSPLACENTAL,1 TRIMEST
     Route: 064
     Dates: start: 20140402, end: 20141126
  6. BETAMETHASONE. [Concomitant]
     Active Substance: BETAMETHASONE
     Indication: PRODUCT USED FOR UNKNOWN INDICATION
     Dosage: UNK
     Route: 064
     Dates: start: 2014, end: 2014

REACTIONS (7)
  - Low birth weight baby [Unknown]
  - Respiratory disorder neonatal [Recovered/Resolved]
  - Premature baby [Unknown]
  - Selective eating disorder [Recovered/Resolved]
  - Maternal exposure during pregnancy [Unknown]
  - Weight gain poor [Unknown]
  - Bradycardia neonatal [Recovered/Resolved]

NARRATIVE: CASE EVENT DATE: 2014
